FAERS Safety Report 9806058 (Version 2)
Quarter: 2014Q1

REPORT INFORMATION
  Report Type: Spontaneous
  Country: US (occurrence: US)
  Receive Date: 20140109
  Receipt Date: 20140213
  Transmission Date: 20141002
  Serious: Yes (Death, Hospitalization)
  Sender: FDA-Public Use
  Company Number: US-SA-2014SA002484

PATIENT
  Age: 58 Year
  Sex: Female
  Weight: 65 kg

DRUGS (3)
  1. HECTOROL [Suspect]
     Indication: PRODUCT USED FOR UNKNOWN INDICATION
     Route: 042
     Dates: start: 201312, end: 201312
  2. ALL OTHER THERAPEUTIC PRODUCTS [Concomitant]
  3. TYLENOL [Concomitant]
     Indication: HEADACHE
     Dates: start: 201312

REACTIONS (4)
  - Unresponsive to stimuli [Unknown]
  - Hypotension [Unknown]
  - Heart rate abnormal [Unknown]
  - Death [Fatal]
